FAERS Safety Report 6631464-0 (Version None)
Quarter: 2010Q1

REPORT INFORMATION
  Report Type: 
  Country: None (occurrence: None)
  Receive Date: 20100312
  Receipt Date: 20100304
  Transmission Date: 20100710
  Serious: Yes (Hospitalization)
  Sender: FDA-Public Use
  Company Number: JP-BRISTOL-MYERS SQUIBB COMPANY-14941504

PATIENT
  Age: 37 Year
  Sex: Male

DRUGS (13)
  1. CETUXIMAB [Suspect]
     Indication: HEAD AND NECK CANCER
     Dosage: 1 DF - 5MG/ML
     Route: 042
     Dates: start: 20100107, end: 20100107
  2. CISPLATIN [Suspect]
     Indication: HEAD AND NECK CANCER
     Route: 042
     Dates: start: 20100107, end: 20100107
  3. 5-FLUOROURACIL [Suspect]
     Indication: HEAD AND NECK CANCER
     Route: 042
     Dates: start: 20100107, end: 20100111
  4. CALCIUM LACTATE [Concomitant]
     Indication: THYROIDECTOMY
     Dosage: 14DAYS BEFORE STARTING THE ST-ONG
     Route: 048
  5. ALFAROL [Concomitant]
     Indication: THYROIDECTOMY
     Dosage: 14DAYS BEFORE STARTING THE ST-ONG
     Route: 048
  6. THYRADIN S [Concomitant]
     Indication: THYROIDECTOMY
     Dosage: 14DAYS BEFORE STARTING THE ST-ONG
  7. LANSOPRAZOLE [Concomitant]
     Indication: PROPHYLAXIS
     Dosage: TABS
     Dates: start: 20100106
  8. LOCOID [Concomitant]
     Indication: PROPHYLAXIS
     Dosage: CREAM
     Dates: start: 20100113
  9. MYSER [Concomitant]
     Indication: PROPHYLAXIS
     Dosage: OINTMENT
     Dates: start: 20100113
  10. HIRUDOID [Concomitant]
     Indication: PROPHYLAXIS
     Dosage: SOFT OINMENT
     Dates: start: 20100113
  11. RINDERON [Concomitant]
     Indication: PROPHYLAXIS
     Dosage: V LOTION
     Dates: start: 20100113
  12. AZUNOL [Concomitant]
     Indication: STOMATITIS
     Dosage: GARGLE LIQUID
     Dates: start: 20100113
  13. XYLOCAINE VISCOUS [Concomitant]
     Indication: STOMATITIS
     Dates: start: 20100114

REACTIONS (1)
  - OESOPHAGEAL FISTULA [None]
